FAERS Safety Report 23439782 (Version 5)
Quarter: 2025Q4

REPORT INFORMATION
  Report Type: Report from Study
  Country: US (occurrence: US)
  Receive Date: 20240124
  Receipt Date: 20251017
  Transmission Date: 20260118
  Serious: Yes (Other)
  Sender: ABBVIE
  Company Number: US-ABBVIE-5601544

PATIENT
  Age: 66 Year
  Sex: Male

DRUGS (2)
  1. RINVOQ [Suspect]
     Active Substance: UPADACITINIB
     Indication: Psoriatic arthropathy
     Dosage: END DATE:2023
     Route: 048
     Dates: start: 20230620
  2. RINVOQ [Suspect]
     Active Substance: UPADACITINIB
     Indication: Psoriatic arthropathy
     Route: 048
     Dates: start: 20230811, end: 202501

REACTIONS (14)
  - Skin cancer [Recovering/Resolving]
  - Joint swelling [Unknown]
  - Hypoacusis [Recovering/Resolving]
  - Ligament sprain [Not Recovered/Not Resolved]
  - Anaemia [Recovering/Resolving]
  - Feeling hot [Recovering/Resolving]
  - Post procedural complication [Recovering/Resolving]
  - Asthenia [Recovering/Resolving]
  - Crohn^s disease [Not Recovered/Not Resolved]
  - Muscle spasms [Unknown]
  - Bone marrow disorder [Unknown]
  - Insomnia [Unknown]
  - Psoriatic arthropathy [Not Recovered/Not Resolved]
  - Mobility decreased [Unknown]

NARRATIVE: CASE EVENT DATE: 20240201
